FAERS Safety Report 8697031 (Version 3)
Quarter: 2019Q3

REPORT INFORMATION
  Report Type: Spontaneous
  Country: FR (occurrence: FR)
  Receive Date: 20120801
  Receipt Date: 20190822
  Transmission Date: 20191005
  Serious: Yes (Hospitalization)
  Sender: FDA-Public Use
  Company Number: FR-ASTRAZENECA-2012SE52115

PATIENT
  Age: 57 Year
  Sex: Male
  Weight: 75 kg

DRUGS (12)
  1. OFLOCET [Suspect]
     Active Substance: OFLOXACIN
     Indication: ENDOCARDITIS
     Route: 048
     Dates: start: 201201
  2. DOBUTAMINE [Concomitant]
     Active Substance: DOBUTAMINE HYDROCHLORIDE
  3. SUFENTANIL [Concomitant]
     Active Substance: SUFENTANIL
  4. FLAGYL [Concomitant]
     Active Substance: METRONIDAZOLE\METRONIDAZOLE HYDROCHLORIDE
  5. TRIFLUCAN [Concomitant]
     Active Substance: FLUCONAZOLE
  6. CLAFORAN [Concomitant]
     Active Substance: CEFOTAXIME SODIUM
  7. MIDAZOLAM [Concomitant]
     Active Substance: MIDAZOLAM HYDROCHLORIDE
  8. NORADRENALINE [Concomitant]
     Active Substance: NOREPINEPHRINE
  9. FOSFOMYCINE [Concomitant]
     Active Substance: FOSFOMYCIN
  10. ADRENALINE [Concomitant]
     Active Substance: EPINEPHRINE
  11. INEXIUM [Suspect]
     Active Substance: ESOMEPRAZOLE
     Route: 048
  12. CYMEVAN [Suspect]
     Active Substance: GANCICLOVIR
     Indication: PNEUMONIA CYTOMEGALOVIRAL
     Route: 065
     Dates: start: 20120320, end: 20120419

REACTIONS (1)
  - Bicytopenia [Recovered/Resolved]

NARRATIVE: CASE EVENT DATE: 20120309
